FAERS Safety Report 10093315 (Version 1)
Quarter: 2014Q2

REPORT INFORMATION
  Report Type: Spontaneous
  Country: US (occurrence: US)
  Receive Date: 20140421
  Receipt Date: 20140421
  Transmission Date: 20141212
  Serious: No
  Sender: FDA-Public Use
  Company Number: US-SA-2013SA120345

PATIENT
  Age: 90 Year
  Sex: Female

DRUGS (1)
  1. ALLEGRA 24 HOUR [Suspect]
     Indication: EAR DISORDER
     Route: 048
     Dates: start: 20131116

REACTIONS (2)
  - Abdominal discomfort [Unknown]
  - Sputum increased [Unknown]
